FAERS Safety Report 20890841 (Version 1)
Quarter: 2022Q2

REPORT INFORMATION
  Report Type: Spontaneous
  Country: US (occurrence: US)
  Receive Date: 20220530
  Receipt Date: 20220530
  Transmission Date: 20220721
  Serious: Yes (Hospitalization)
  Sender: FDA-Public Use
  Company Number: US-TOLMAR, INC.-22US034837

PATIENT
  Age: 39 Year
  Sex: Female

DRUGS (1)
  1. ELIGARD [Suspect]
     Active Substance: LEUPROLIDE ACETATE
     Indication: Large intestinal obstruction
     Dosage: UNK
     Route: 030

REACTIONS (3)
  - Disease recurrence [Unknown]
  - Drug effective for unapproved indication [Unknown]
  - Off label use [Unknown]
